FAERS Safety Report 6308435-7 (Version None)
Quarter: 2009Q3

REPORT INFORMATION
  Report Type: 
  Country: None (occurrence: None)
  Receive Date: 20090813
  Receipt Date: 20090729
  Transmission Date: 20100115
  Serious: Yes (Hospitalization, Other)
  Sender: FDA-Public Use
  Company Number: FR-ASTRAZENECA-2009SE06186

PATIENT
  Age: 13343 Day
  Sex: Female

DRUGS (6)
  1. NEXIUM [Suspect]
     Route: 048
     Dates: start: 20090213, end: 20090301
  2. ROCEPHIN [Suspect]
     Route: 042
     Dates: start: 20090301, end: 20090301
  3. IMUREL [Suspect]
     Dates: start: 20090201, end: 20090301
  4. SOLUPRED [Concomitant]
     Route: 048
     Dates: start: 20090213
  5. CACIT VITAMIN D3 [Concomitant]
     Route: 048
     Dates: start: 20090213
  6. ULTRA LEVURE [Concomitant]
     Route: 048
     Dates: start: 20090213, end: 20090201

REACTIONS (1)
  - MYOPERICARDITIS [None]
